FAERS Safety Report 13442430 (Version 1)
Quarter: 2017Q2

REPORT INFORMATION
  Report Type: Spontaneous
  Country: US (occurrence: US)
  Receive Date: 20170413
  Receipt Date: 20170413
  Transmission Date: 20170830
  Serious: Yes (Hospitalization)
  Sender: FDA-Public Use
  Company Number: None

PATIENT
  Age: 49 Year
  Sex: Female
  Weight: 105.5 kg

DRUGS (5)
  1. PACLITAXEL. [Concomitant]
     Active Substance: PACLITAXEL
  2. CYCLOPHOSPHAMIDE. [Concomitant]
     Active Substance: CYCLOPHOSPHAMIDE
  3. TRASTUZUMAB 929MG/250ML [Suspect]
     Active Substance: TRASTUZUMAB
     Indication: BREAST CANCER
     Dosage: ?          OTHER FREQUENCY:ONCE;?
     Route: 041
     Dates: start: 20170316, end: 20170316
  4. PERTUZUMAB [Suspect]
     Active Substance: PERTUZUMAB
     Indication: BREAST CANCER
     Dosage: ?          OTHER FREQUENCY:ONCE;?
     Route: 041
     Dates: start: 20170316, end: 20170316
  5. DOXORUBICIN [Concomitant]
     Active Substance: DOXORUBICIN

REACTIONS (11)
  - Dyspnoea [None]
  - Cough [None]
  - Weight decreased [None]
  - Pyrexia [None]
  - Dyspnoea exertional [None]
  - Decreased appetite [None]
  - Atypical pneumonia [None]
  - Fatigue [None]
  - Diarrhoea [None]
  - Pneumonitis [None]
  - Oxygen saturation decreased [None]

NARRATIVE: CASE EVENT DATE: 20170405
